FAERS Safety Report 4512463-1 (Version None)
Quarter: 2004Q4

REPORT INFORMATION
  Report Type: 
  Country: None (occurrence: None)
  Receive Date: 20041124
  Receipt Date: 20041108
  Transmission Date: 20050328
  Serious: Yes (Death)
  Sender: FDA-Public Use
  Company Number: B0351194A

PATIENT
  Age: 44 Year
  Sex: Male

DRUGS (10)
  1. COMBIVIR [Suspect]
     Dosage: ORAL
     Route: 048
  2. FENTANYL [Suspect]
     Dosage: ORAL
     Route: 048
  3. CLONAZEPAM [Suspect]
     Dosage: ORAL
     Route: 048
  4. RISPERDAL [Suspect]
     Dosage: ORAL
     Route: 048
  5. VENTOLIN [Suspect]
     Dosage: ORAL
     Route: 048
  6. ZOLPIDEM TARTRATE [Suspect]
     Dosage: ORAL
     Route: 048
  7. CITALOPRAM [Suspect]
     Dosage: ORAL
     Route: 048
  8. BEXTRA [Suspect]
     Dosage: ORAL
     Route: 048
  9. PROGESTERONE [Suspect]
     Dosage: ORAL
     Route: 048
  10. UNKNOWN (UNKNOWN) [Suspect]
     Dosage: ORAL
     Route: 048

REACTIONS (8)
  - BLOOD CREATINE PHOSPHOKINASE INCREASED [None]
  - BLOOD CREATININE INCREASED [None]
  - COMA [None]
  - DRUG ABUSER [None]
  - DRUG INEFFECTIVE [None]
  - HYPOGLYCAEMIA [None]
  - KUSSMAUL RESPIRATION [None]
  - MULTIPLE DRUG OVERDOSE [None]
